FAERS Safety Report 24021283 (Version 1)
Quarter: 2024Q2

REPORT INFORMATION
  Report Type: Spontaneous
  Country: IN (occurrence: IN)
  Receive Date: 20240627
  Receipt Date: 20240627
  Transmission Date: 20240716
  Serious: Yes (Hospitalization, Other)
  Sender: FDA-Public Use
  Company Number: IN-002147023-NVSC2024IN130922

PATIENT
  Age: 35 Year
  Sex: Female

DRUGS (2)
  1. MYFORTIC [Suspect]
     Active Substance: MYCOPHENOLATE SODIUM
     Indication: Renal transplant
     Dosage: 260 MG, BID
     Route: 048
  2. TACROLIMUS [Suspect]
     Active Substance: TACROLIMUS
     Indication: Renal transplant
     Dosage: 3.5 MG, BID (1.5 MG MORNING 2 MG NIGHT)
     Route: 048

REACTIONS (12)
  - Pancreatic enlargement [Unknown]
  - Hypertension [Unknown]
  - Pancreatitis acute [Unknown]
  - Graft complication [Unknown]
  - Hepatomegaly [Unknown]
  - Gallbladder disorder [Unknown]
  - Breath sounds abnormal [Unknown]
  - Weight decreased [Unknown]
  - Chest discomfort [Unknown]
  - Pleural effusion [Unknown]
  - Chest pain [Unknown]
  - Nausea [Unknown]

NARRATIVE: CASE EVENT DATE: 20190512
